FAERS Safety Report 16972313 (Version 1)
Quarter: 2019Q4

REPORT INFORMATION
  Report Type: Spontaneous
  Country: DE (occurrence: DE)
  Receive Date: 20191029
  Receipt Date: 20191029
  Transmission Date: 20200122
  Serious: Yes (Other)
  Sender: FDA-Public Use
  Company Number: DE-BAXTER-2019BAX019414

PATIENT
  Age: 86 Year
  Sex: Female

DRUGS (1)
  1. EXTRANEAL [Suspect]
     Active Substance: CALCIUM CHLORIDE\ICODEXTRIN\MAGNESIUM CHLORIDE\SODIUM CHLORIDE\SODIUM LACTATE
     Indication: PERITONEAL DIALYSIS
     Dosage: ONLY AT NIGHT
     Route: 033
     Dates: start: 201906, end: 20190930

REACTIONS (13)
  - Pain [Recovering/Resolving]
  - Erythema [Recovering/Resolving]
  - Pain in extremity [Recovering/Resolving]
  - Rash [Recovering/Resolving]
  - Oedema peripheral [Recovering/Resolving]
  - Pruritus [Recovering/Resolving]
  - Arteriosclerosis [Recovering/Resolving]
  - Mobility decreased [Recovering/Resolving]
  - Dyspnoea [Recovering/Resolving]
  - Inflammation [Recovering/Resolving]
  - Cardiovascular disorder [Recovering/Resolving]
  - Acne [Recovering/Resolving]
  - General physical health deterioration [Recovering/Resolving]
